FAERS Safety Report 22382330 (Version 1)
Quarter: 2023Q2

REPORT INFORMATION
  Report Type: Spontaneous
  Country: JP (occurrence: JP)
  Receive Date: 20230530
  Receipt Date: 20230530
  Transmission Date: 20230722
  Serious: Yes (Other)
  Sender: FDA-Public Use
  Company Number: JP-002147023-NVSJ2023JP008530

PATIENT
  Age: 19 Year
  Sex: Male

DRUGS (11)
  1. KYMRIAH [Suspect]
     Active Substance: TISAGENLECLEUCEL
     Indication: B-cell type acute leukaemia
     Dosage: UNK
     Route: 041
  2. METHOTREXATE [Concomitant]
     Active Substance: METHOTREXATE
     Indication: B-cell type acute leukaemia
     Dosage: HIGH DOSE
     Route: 065
  3. BLINATUMOMAB [Concomitant]
     Active Substance: BLINATUMOMAB
     Indication: Plasma cell myeloma
     Dosage: UNK
     Route: 065
  4. BLINATUMOMAB [Concomitant]
     Active Substance: BLINATUMOMAB
     Dosage: UNK
     Route: 065
  5. INOTUZUMAB OZOGAMICIN [Concomitant]
     Active Substance: INOTUZUMAB OZOGAMICIN
     Indication: B-cell type acute leukaemia
     Dosage: UNK
     Route: 065
  6. FLUDARABINE PHOSPHATE [Concomitant]
     Active Substance: FLUDARABINE PHOSPHATE
     Indication: Product used for unknown indication
     Dosage: UNK
     Route: 065
  7. CYCLOPHOSPHAMIDE [Concomitant]
     Active Substance: CYCLOPHOSPHAMIDE
     Indication: Product used for unknown indication
     Dosage: MARCH OF YEAR X-1, 1 COURSE OF CHOP THERAPY
     Route: 065
  8. CYCLOPHOSPHAMIDE [Concomitant]
     Active Substance: CYCLOPHOSPHAMIDE
     Dosage: MARCH OF YEAR X, MINI HYPER-CVAD THERAPY
     Route: 065
  9. CYCLOPHOSPHAMIDE [Concomitant]
     Active Substance: CYCLOPHOSPHAMIDE
     Dosage: UNK
     Route: 065
  10. TOCILIZUMAB [Concomitant]
     Active Substance: TOCILIZUMAB
     Indication: Product used for unknown indication
     Dosage: UNK
     Route: 065
  11. METHYLPREDNISOLONE [Concomitant]
     Active Substance: METHYLPREDNISOLONE
     Indication: Product used for unknown indication
     Dosage: UNK
     Route: 065

REACTIONS (5)
  - Cytokine release syndrome [Unknown]
  - Graft versus host disease in skin [Recovering/Resolving]
  - Plasma cell myeloma [Unknown]
  - Concomitant disease aggravated [Unknown]
  - Erythema [Unknown]
